FAERS Safety Report 5959396-1 (Version None)
Quarter: 2008Q4

REPORT INFORMATION
  Report Type: 
  Country: None (occurrence: None)
  Receive Date: 20081120
  Receipt Date: 20080812
  Transmission Date: 20090506
  Serious: No
  Sender: FDA-Public Use
  Company Number: A0742207A

PATIENT
  Age: 70 Year
  Sex: Male

DRUGS (2)
  1. VERAMYST [Suspect]
     Dosage: 2SPR PER DAY
     Route: 045
     Dates: start: 20080101
  2. ASPIRIN [Concomitant]
     Dosage: 81MG UNKNOWN

REACTIONS (2)
  - DRY MOUTH [None]
  - SINUSITIS [None]
